FAERS Safety Report 4294747-8 (Version None)
Quarter: 2004Q1

REPORT INFORMATION
  Report Type: 
  Country: None (occurrence: None)
  Receive Date: 20040211
  Receipt Date: 20040206
  Transmission Date: 20041129
  Serious: Yes (Hospitalization)
  Sender: FDA-Public Use
  Company Number: 200311236BVD

PATIENT
  Age: 83 Year
  Sex: Female
  Weight: 60 kg

DRUGS (17)
  1. ASPIRIN [Suspect]
     Indication: CARDIAC FAILURE
     Dosage: ORAL
     Route: 048
     Dates: end: 20010718
  2. LANITOP MITE (METILDIGOXIN) [Suspect]
     Indication: CARDIAC FAILURE
     Dosage: ORAL
     Route: 048
     Dates: start: 20010717
  3. TENSOBON COMP [Suspect]
     Indication: HYPERTENSION
     Dosage: 0.5 MG, TOTAL DAILY, ORAL
     Route: 048
     Dates: start: 20010717
  4. PHENOXYMETHYL PENICILLIN [Suspect]
     Indication: FEMORAL NECK FRACTURE
     Dosage: ONCE, ORAL
     Route: 048
     Dates: start: 20010718
  5. ENOXAPARIN SODIUM [Suspect]
     Indication: THROMBOSIS PROPHYLAXIS
     Dosage: 40 IU, TOTAL DAILY, INTRAVENOUS
     Route: 042
     Dates: start: 20010718
  6. INDOMETHACIN [Suspect]
     Indication: FEMORAL NECK FRACTURE
     Dosage: 25 MG, TID, ORAL
     Route: 048
     Dates: start: 20010718
  7. DIPYRONE TAB [Suspect]
     Indication: FEMORAL NECK FRACTURE
     Dosage: SEE IMAGE
     Route: 042
     Dates: start: 20010719
  8. DIPYRONE TAB [Suspect]
     Indication: PAIN
     Dosage: SEE IMAGE
     Route: 042
     Dates: start: 20010719
  9. DIPYRONE TAB [Suspect]
     Indication: FEMORAL NECK FRACTURE
     Dosage: SEE IMAGE
     Route: 042
     Dates: start: 20030721
  10. DIPYRONE TAB [Suspect]
     Indication: PAIN
     Dosage: SEE IMAGE
     Route: 042
     Dates: start: 20030721
  11. TRAMADOL HCL [Suspect]
     Indication: FEMORAL NECK FRACTURE
     Dosage: SEE IMAGE
     Route: 042
     Dates: start: 20010719
  12. TRAMADOL HCL [Suspect]
     Indication: PAIN
     Dosage: SEE IMAGE
     Route: 042
     Dates: start: 20010719
  13. TRAMADOL HCL [Suspect]
     Indication: FEMORAL NECK FRACTURE
     Dosage: SEE IMAGE
     Route: 042
     Dates: start: 20030721
  14. TRAMADOL HCL [Suspect]
     Indication: PAIN
     Dosage: SEE IMAGE
     Route: 042
     Dates: start: 20030721
  15. DIPIPERON (PIPAMPERONE) [Suspect]
     Indication: FEMORAL NECK FRACTURE
     Dosage: SEE IMAGE
     Route: 048
     Dates: start: 20010719
  16. DIPIPERON (PIPAMPERONE) [Suspect]
     Indication: FEMORAL NECK FRACTURE
     Dosage: SEE IMAGE
     Route: 048
     Dates: start: 20030721
  17. COTRIM [Suspect]
     Indication: URINARY TRACT INFECTION
     Dosage: ORAL
     Route: 048
     Dates: start: 20010724

REACTIONS (4)
  - FEMORAL NECK FRACTURE [None]
  - HERPES SIMPLEX [None]
  - STEVENS-JOHNSON SYNDROME [None]
  - URINARY TRACT INFECTION [None]
